FAERS Safety Report 12398788 (Version 4)
Quarter: 2016Q3

REPORT INFORMATION
  Report Type: Spontaneous
  Country: US (occurrence: US)
  Receive Date: 20160524
  Receipt Date: 20160704
  Transmission Date: 20161109
  Serious: Yes (Death, Other)
  Sender: FDA-Public Use
  Company Number: US-PFIZER INC-2016252257

PATIENT
  Age: 71 Year
  Sex: Male
  Weight: 77 kg

DRUGS (6)
  1. SUTENT [Suspect]
     Active Substance: SUNITINIB MALATE
     Indication: NEOPLASM MALIGNANT
  2. LEVOTHYROXINE. [Concomitant]
     Active Substance: LEVOTHYROXINE
     Dosage: UNK
  3. VITAMIN D [Concomitant]
     Active Substance: CHOLECALCIFEROL
     Dosage: UNK
  4. VITAMIN B12 [Concomitant]
     Active Substance: CYANOCOBALAMIN
     Dosage: UNK
  5. SUTENT [Suspect]
     Active Substance: SUNITINIB MALATE
     Indication: GASTROINTESTINAL STROMAL TUMOUR
     Dosage: 37.5 MG, CYCLIC (28DAYS ON AND 14 DAYS OFF)
     Dates: start: 20160421
  6. SIMVASTATIN. [Concomitant]
     Active Substance: SIMVASTATIN
     Dosage: UNK

REACTIONS (13)
  - Somnolence [Unknown]
  - Ascites [Unknown]
  - Abdominal pain upper [Unknown]
  - Nausea [Unknown]
  - Decreased appetite [Recovering/Resolving]
  - Flatulence [Unknown]
  - Constipation [Unknown]
  - Malaise [Unknown]
  - Diarrhoea [Unknown]
  - Abdominal discomfort [Unknown]
  - Death [Fatal]
  - Pleural effusion [Unknown]
  - Thyroid disorder [Unknown]

NARRATIVE: CASE EVENT DATE: 20160612
